FAERS Safety Report 18937012 (Version 1)
Quarter: 2021Q1

REPORT INFORMATION
  Report Type: Spontaneous
  Country: US (occurrence: US)
  Receive Date: 20210224
  Receipt Date: 20210224
  Transmission Date: 20210420
  Serious: No
  Sender: FDA-Public Use
  Company Number: US-TERSERA THERAPEUTICS LLC-2020TRS003779

PATIENT

DRUGS (1)
  1. PRIALT [Suspect]
     Active Substance: ZICONOTIDE ACETATE
     Indication: PAIN
     Dosage: 5.001 MCG, QD (MAX: 6.877, CONCENTRATIONS: 10 MCG/ML)
     Route: 037

REACTIONS (2)
  - Device malfunction [Unknown]
  - Pain [Unknown]

NARRATIVE: CASE EVENT DATE: 20201015
